FAERS Safety Report 9746358 (Version 2)
Quarter: 2014Q1

REPORT INFORMATION
  Report Type: Spontaneous
  Country: FR (occurrence: FR)
  Receive Date: 20131211
  Receipt Date: 20140320
  Transmission Date: 20141002
  Serious: Yes (Other)
  Sender: FDA-Public Use
  Company Number: FR-SA-2013SA126662

PATIENT
  Sex: 0

DRUGS (4)
  1. THYMOGLOBULINE [Suspect]
     Indication: BONE MARROW CONDITIONING REGIMEN
     Dosage: DOSE-2.5-3.5 MG/KG
     Route: 065
  2. FLUDARABINE [Concomitant]
     Indication: BONE MARROW CONDITIONING REGIMEN
  3. CYCLOPHOSPHAMIDE [Concomitant]
     Indication: BONE MARROW CONDITIONING REGIMEN
  4. BUSULFAN [Concomitant]
     Indication: BONE MARROW CONDITIONING REGIMEN

REACTIONS (4)
  - Liver injury [Unknown]
  - Alanine aminotransferase increased [Recovered/Resolved]
  - Aspartate aminotransferase increased [Recovered/Resolved]
  - Blood bilirubin increased [Unknown]
